FAERS Safety Report 21475248 (Version 1)
Quarter: 2022Q4

REPORT INFORMATION
  Report Type: Spontaneous
  Country: US (occurrence: US)
  Receive Date: 20221019
  Receipt Date: 20221019
  Transmission Date: 20230113
  Serious: Yes (Hospitalization, Other)
  Sender: FDA-Public Use
  Company Number: US-MSNLABS-2022MSNLIT01244

PATIENT

DRUGS (5)
  1. PACLITAXEL [Suspect]
     Active Substance: PACLITAXEL
     Indication: Lung adenocarcinoma stage IV
     Dosage: 4 CYCLES
     Route: 065
     Dates: start: 202011, end: 202101
  2. BEVACIZUMAB [Suspect]
     Active Substance: BEVACIZUMAB
     Indication: Lung adenocarcinoma stage IV
     Dosage: 4 CYCLES
     Route: 065
     Dates: start: 202011, end: 202101
  3. ATEZOLIZUMAB [Suspect]
     Active Substance: ATEZOLIZUMAB
     Indication: Lung adenocarcinoma stage IV
     Dosage: 4 CYCLES
     Route: 065
     Dates: start: 202011, end: 202101
  4. CARBOPLATIN [Suspect]
     Active Substance: CARBOPLATIN
     Indication: Lung adenocarcinoma stage IV
     Dosage: 4 CYCLES
     Route: 065
     Dates: start: 202011, end: 202101
  5. BOSUTINIB [Suspect]
     Active Substance: BOSUTINIB
     Indication: Lung adenocarcinoma stage IV
     Route: 065
     Dates: start: 202101, end: 202107

REACTIONS (1)
  - Disease progression [Unknown]
